FAERS Safety Report 13045962 (Version 3)
Quarter: 2017Q1

REPORT INFORMATION
  Report Type: Spontaneous
  Country: US (occurrence: US)
  Receive Date: 20161220
  Receipt Date: 20170228
  Transmission Date: 20170428
  Serious: Yes (Death, Hospitalization, Other)
  Sender: FDA-Public Use
  Company Number: US-PFIZER INC-2016584069

PATIENT
  Age: 75 Year
  Sex: Male
  Weight: 56.69 kg

DRUGS (18)
  1. VFEND [Suspect]
     Active Substance: VORICONAZOLE
     Indication: PULMONARY MYCOSIS
     Dosage: 200 MG, 2X/DAY
     Route: 048
     Dates: end: 20170217
  2. AMOXICILLIN. [Concomitant]
     Active Substance: AMOXICILLIN
     Dosage: 4 CAPLETS BY MOUTH 1 HOUR PRIOR TO DENTAL WORK
     Route: 048
     Dates: end: 20170217
  3. FEXOFENADINE [Concomitant]
     Active Substance: FEXOFENADINE\FEXOFENADINE HYDROCHLORIDE
     Indication: HYPERSENSITIVITY
     Dosage: UNK
     Dates: end: 20170217
  4. COUMADIN [Concomitant]
     Active Substance: WARFARIN SODIUM
     Indication: ANTICOAGULANT THERAPY
     Dosage: 2 MG, ALTERNATE DAY (ALTERNATE 1 TO 2 TABLETS EVERY OTHER DAY AT BEDTIME)
     Dates: end: 20170217
  5. DESMOPRESSIN ACETATE. [Concomitant]
     Active Substance: DESMOPRESSIN ACETATE
     Indication: BLADDER DISORDER
  6. FERROUS SULFATE. [Concomitant]
     Active Substance: FERROUS SULFATE
     Indication: ANAEMIA
     Dosage: 325 MG, 1X/DAY
     Route: 048
     Dates: end: 20170217
  7. VFEND [Suspect]
     Active Substance: VORICONAZOLE
     Indication: FUNGAL INFECTION
  8. OXYBUTYNIN CHLORIDE. [Concomitant]
     Active Substance: OXYBUTYNIN CHLORIDE
     Indication: BLADDER DISORDER
     Dosage: 5 MG, 1X/DAY
     Route: 048
     Dates: end: 20170217
  9. FLOMAX [Concomitant]
     Active Substance: TAMSULOSIN HYDROCHLORIDE
     Indication: PROSTATIC DISORDER
  10. CREON [Concomitant]
     Active Substance: PANCRELIPASE AMYLASE\PANCRELIPASE LIPASE\PANCRELIPASE PROTEASE
     Indication: PANCREATITIS
     Dosage: 12000 IU, 3X/DAY
     Route: 048
     Dates: end: 20170217
  11. HYDROCODONE [Concomitant]
     Active Substance: HYDROCODONE
     Indication: COUGH
  12. ALLOPURINOL. [Concomitant]
     Active Substance: ALLOPURINOL
     Indication: NEPHROLITHIASIS
     Dosage: 300 MG, DAILY (1 TABLET DAILY WITH CHEMOTHERAPY)
     Dates: end: 20170217
  13. FLOMAX [Concomitant]
     Active Substance: TAMSULOSIN HYDROCHLORIDE
     Indication: BLADDER DISORDER
     Dosage: 0.4 MG, 1X/DAY, AT BEDTIME
     Route: 048
     Dates: end: 20170217
  14. AMOXICILLIN. [Concomitant]
     Active Substance: AMOXICILLIN
     Indication: DENTAL CARE
     Dosage: 500 MG, UNK
  15. PROCHLORPERAZINE MALEATE. [Concomitant]
     Active Substance: PROCHLORPERAZINE MALEATE
     Indication: NAUSEA
     Dosage: 10 MG, 4X/DAY (ONE TABLET EVERY 6 HOURS)
     Route: 048
     Dates: end: 20170217
  16. NEXIUM [Concomitant]
     Active Substance: ESOMEPRAZOLE MAGNESIUM
     Indication: DYSPEPSIA
     Dosage: 40 MG, 1X/DAY AT BEDTIME
  17. DESMOPRESSIN ACETATE. [Concomitant]
     Active Substance: DESMOPRESSIN ACETATE
     Indication: PROSTATIC DISORDER
     Dosage: 0.2 MG, 1X/DAY (AT BEDTIME)
     Route: 048
     Dates: end: 20170217
  18. HYDROCODONE [Concomitant]
     Active Substance: HYDROCODONE
     Indication: PAIN
     Dosage: 1 TABLET, 4X/DAY (1 TABLET UP TO 4 TIMES A DAY)
     Route: 048
     Dates: end: 20170217

REACTIONS (3)
  - Lymphoma [Fatal]
  - Skin cancer [Unknown]
  - Sepsis [Fatal]
